FAERS Safety Report 11485552 (Version 1)
Quarter: 2015Q3

REPORT INFORMATION
  Report Type: Spontaneous
  Country: US (occurrence: US)
  Receive Date: 20150909
  Receipt Date: 20150909
  Transmission Date: 20151125
  Serious: No
  Sender: FDA-Public Use
  Company Number: US-JAZZ-2014-US-017195

PATIENT
  Age: 22 Year
  Sex: Female

DRUGS (2)
  1. XYREM [Suspect]
     Active Substance: SODIUM OXYBATE
     Indication: CATAPLEXY
     Dosage: 2.5 G, BID
     Route: 048
     Dates: start: 201412
  2. XYREM [Suspect]
     Active Substance: SODIUM OXYBATE
     Indication: NARCOLEPSY
     Dosage: 2.5 G, QD
     Route: 048
     Dates: start: 20141218, end: 201412

REACTIONS (13)
  - Stress [Unknown]
  - Tachycardia [Recovered/Resolved]
  - Anxiety [Recovered/Resolved]
  - Gastroenteritis viral [Recovered/Resolved]
  - Tinnitus [Recovered/Resolved]
  - Vomiting [Unknown]
  - Somnolence [Unknown]
  - Upper respiratory tract infection [Not Recovered/Not Resolved]
  - Unevaluable event [Not Recovered/Not Resolved]
  - Dyspnoea [Recovered/Resolved]
  - Dizziness [Recovered/Resolved]
  - Nausea [Unknown]
  - Incoherent [Recovered/Resolved]

NARRATIVE: CASE EVENT DATE: 2014
